FAERS Safety Report 5034884-3 (Version None)
Quarter: 2006Q2

REPORT INFORMATION
  Report Type: 
  Country: None (occurrence: None)
  Receive Date: 20060519
  Receipt Date: 20060118
  Transmission Date: 20061013
  Serious: No
  Sender: FDA-Public Use
  Company Number: ZONI001338

PATIENT
  Age: 34 Year
  Sex: Female

DRUGS (2)
  1. ZONEGRAN [Suspect]
     Indication: COMPLEX PARTIAL SEIZURES
     Dosage: ORAL
     Route: 048
  2. LAMOTRIGINE [Concomitant]

REACTIONS (1)
  - SUICIDAL IDEATION [None]
